FAERS Safety Report 25938497 (Version 2)
Quarter: 2025Q4

REPORT INFORMATION
  Report Type: Spontaneous
  Country: US (occurrence: US)
  Receive Date: 20251019
  Receipt Date: 20251108
  Transmission Date: 20260118
  Serious: No
  Sender: SANOFI AVENTIS
  Company Number: US-SA-2025SA311090

PATIENT
  Age: 62 Year
  Sex: Female

DRUGS (2)
  1. DUPIXENT [Suspect]
     Active Substance: DUPILUMAB
     Indication: Dermatitis atopic
     Dosage: 300 MG, QOW
     Route: 058
     Dates: start: 20250724
  2. DUPIXENT [Suspect]
     Active Substance: DUPILUMAB
     Indication: Eczema

REACTIONS (6)
  - Dry skin [Recovering/Resolving]
  - Skin irritation [Recovering/Resolving]
  - Rash [Recovering/Resolving]
  - Fatigue [Unknown]
  - Migraine [Unknown]
  - Stress at work [Unknown]

NARRATIVE: CASE EVENT DATE: 20250101
